FAERS Safety Report 7081446-2 (Version None)
Quarter: 2010Q4

REPORT INFORMATION
  Report Type: 
  Country: None (occurrence: None)
  Receive Date: 20101103
  Receipt Date: 20101026
  Transmission Date: 20110411
  Serious: Yes (Hospitalization)
  Sender: FDA-Public Use
  Company Number: US-ABBOTT-10P-163-0681437-00

PATIENT
  Sex: Female
  Weight: 102.15 kg

DRUGS (13)
  1. HUMIRA [Suspect]
     Indication: CROHN'S DISEASE
     Dates: start: 20090101, end: 20100501
  2. HUMIRA [Suspect]
     Indication: COLITIS
     Dates: start: 20100501
  3. ASCORBIC ACID [Concomitant]
     Indication: VITAMIN SUPPLEMENTATION
  4. ALIGN [Concomitant]
     Indication: PROBIOTIC THERAPY
  5. VITAMINS [Concomitant]
     Indication: VITAMIN SUPPLEMENTATION
  6. CALCIUM [Concomitant]
     Indication: MINERAL SUPPLEMENTATION
  7. FISH OIL [Concomitant]
     Indication: MEDICAL DIET
  8. FLUTICASONE PROPIONATE [Concomitant]
     Indication: HYPERSENSITIVITY
  9. ADVAIR DISKUS 100/50 [Concomitant]
     Indication: ASTHMA
  10. OMEPRAZOLE [Concomitant]
     Indication: GASTROOESOPHAGEAL REFLUX DISEASE
  11. SIMVASTATIN [Concomitant]
     Indication: BLOOD CHOLESTEROL INCREASED
  12. TRIAMTERENE [Concomitant]
     Indication: HYPERTENSION
  13. DIOVAN [Concomitant]
     Indication: HYPERTENSION

REACTIONS (6)
  - ALOPECIA [None]
  - COLITIS [None]
  - CROHN'S DISEASE [None]
  - HAEMORRHAGE [None]
  - PRURITUS [None]
  - UTERINE ENLARGEMENT [None]
